FAERS Safety Report 11867513 (Version 1)
Quarter: 2015Q4

REPORT INFORMATION
  Report Type: Spontaneous
  Country: US (occurrence: US)
  Receive Date: 20151224
  Receipt Date: 20151224
  Transmission Date: 20160305
  Serious: No
  Sender: FDA-Public Use
  Company Number: US-GLAXOSMITHKLINE-US2015GSK179888

PATIENT
  Sex: Female

DRUGS (1)
  1. TANZEUM [Suspect]
     Active Substance: ALBIGLUTIDE
     Indication: TYPE 2 DIABETES MELLITUS
     Dosage: 30 MG, WE
     Dates: start: 201511

REACTIONS (8)
  - Upper respiratory tract infection [Unknown]
  - Paranasal sinus hypersecretion [Unknown]
  - Respiratory disorder [Unknown]
  - Sinusitis [Unknown]
  - Device use error [Unknown]
  - Cough [Unknown]
  - Condition aggravated [Unknown]
  - Malaise [Unknown]
